FAERS Safety Report 6611187-4 (Version None)
Quarter: 2010Q1

REPORT INFORMATION
  Report Type: 
  Country: None (occurrence: None)
  Receive Date: 20100301
  Receipt Date: 20100301
  Transmission Date: 20100710
  Serious: Yes (Other)
  Sender: FDA-Public Use
  Company Number: None

PATIENT
  Sex: Male
  Weight: 81.6475 kg

DRUGS (3)
  1. LEXAPRO [Suspect]
     Indication: DEPRESSION
     Dosage: 10/MG 1X DAILY IN THE MORNING
     Dates: start: 20100209
  2. LEXAPRO [Suspect]
     Indication: DEPRESSION
     Dosage: 10/MG 1X DAILY IN THE MORNING
     Dates: start: 20100210
  3. LEXAPRO [Suspect]
     Indication: DEPRESSION
     Dosage: 10/MG 1X DAILY IN THE MORNING
     Dates: start: 20100211

REACTIONS (1)
  - STARING [None]
